FAERS Safety Report 4404115-3 (Version None)
Quarter: 2004Q3

REPORT INFORMATION
  Report Type: 
  Country: None (occurrence: None)
  Receive Date: 20040719
  Receipt Date: 20040712
  Transmission Date: 20050211
  Serious: Yes (Other)
  Sender: FDA-Public Use
  Company Number: 2003-07-3406

PATIENT
  Age: 29 Year
  Sex: Female

DRUGS (6)
  1. RIBAVIRIN [Suspect]
     Indication: SEVERE ACUTE RESPIRATORY SYNDROME
     Dosage: 400 MG TID ORAL
     Route: 048
     Dates: start: 20030330, end: 20030401
  2. VIRAZOLE [Suspect]
     Indication: SEVERE ACUTE RESPIRATORY SYNDROME
     Dosage: 1 GM Q6H INTRAVENOUS
     Route: 042
     Dates: start: 20030325, end: 20030330
  3. LEVOFLOXACIN [Concomitant]
  4. SOLU-MEDROL [Concomitant]
  5. PHOSPHATE-SANDOZ [Concomitant]
  6. CALCIUM CARBONATE TABLETS [Concomitant]

REACTIONS (5)
  - ALANINE AMINOTRANSFERASE INCREASED [None]
  - ASPARTATE AMINOTRANSFERASE INCREASED [None]
  - BLOOD BILIRUBIN INCREASED [None]
  - HYPOKALAEMIA [None]
  - HYPOMAGNESAEMIA [None]
